FAERS Safety Report 5328393-1 (Version None)
Quarter: 2007Q2

REPORT INFORMATION
  Report Type: 
  Country: None (occurrence: None)
  Receive Date: 20070514
  Receipt Date: 20070427
  Transmission Date: 20071010
  Serious: Yes (Other)
  Sender: FDA-Public Use
  Company Number: 2007RR-07284

PATIENT
  Age: 39 Year
  Sex: Female

DRUGS (5)
  1. AMPICILLIN [Suspect]
     Indication: MENINGOENCEPHALITIS BACTERIAL
     Dosage: SEE IMAGE
  2. AMPICILLIN [Suspect]
     Indication: MENINGOENCEPHALITIS BACTERIAL
     Dosage: SEE IMAGE
  3. PHENYTOIN [Suspect]
     Indication: MENINGOENCEPHALITIS BACTERIAL
     Dosage: 250 MG, QD
  4. FUROSEMIDE [Suspect]
     Indication: MENINGOENCEPHALITIS BACTERIAL
     Dosage: SEE IMAGE
  5. FUROSEMIDE [Suspect]
     Indication: MENINGOENCEPHALITIS BACTERIAL
     Dosage: SEE IMAGE

REACTIONS (1)
  - STEVENS-JOHNSON SYNDROME [None]
